FAERS Safety Report 7417161-2 (Version None)
Quarter: 2011Q2

REPORT INFORMATION
  Report Type: 
  Country: None (occurrence: None)
  Receive Date: 20110415
  Receipt Date: 20101029
  Transmission Date: 20111010
  Serious: Yes (Other)
  Sender: FDA-Public Use
  Company Number: US-BAYER-201028019NA

PATIENT
  Age: 33 Year
  Sex: Female
  Weight: 65.76 kg

DRUGS (14)
  1. PROVIGIL [Concomitant]
  2. YAZ [Suspect]
     Indication: ACNE
     Dosage: UNK
     Route: 048
     Dates: start: 20080401, end: 20081201
  3. TEMAZEPAM [Concomitant]
  4. YAZ [Suspect]
     Indication: PREMENSTRUAL SYNDROME
  5. YAZ [Suspect]
     Indication: MENSTRUAL CYCLE MANAGEMENT
  6. YASMIN [Suspect]
  7. ELMIRON [Concomitant]
  8. YAZ [Suspect]
  9. YASMIN [Suspect]
     Indication: PREMENSTRUAL SYNDROME
  10. AMBIEN [Concomitant]
  11. YASMIN [Suspect]
     Indication: MENSTRUAL CYCLE MANAGEMENT
     Dosage: UNK
     Route: 048
     Dates: start: 20020401, end: 20030201
  12. ASTELIN [Concomitant]
  13. LEXAPRO [Concomitant]
  14. CLONAZEPAM [Concomitant]

REACTIONS (2)
  - MITRAL VALVE PROLAPSE [None]
  - CHEST PAIN [None]
